FAERS Safety Report 11525712 (Version 2)
Quarter: 2015Q3

REPORT INFORMATION
  Report Type: Spontaneous
  Country: US (occurrence: US)
  Receive Date: 20150918
  Receipt Date: 20150921
  Transmission Date: 20151125
  Serious: Yes (Other)
  Sender: FDA-Public Use
  Company Number: US-GLAXOSMITHKLINE-US2015GSK133465

PATIENT

DRUGS (2)
  1. ACYCLOVIR TABLET [Suspect]
     Active Substance: ACYCLOVIR
     Indication: PRODUCT USED FOR UNKNOWN INDICATION
     Dosage: UNK UNK, BID
  2. ALBUTEROL INHALATIONAL POWDER [Suspect]
     Active Substance: ALBUTEROL
     Indication: PRODUCT USED FOR UNKNOWN INDICATION

REACTIONS (9)
  - Nonspecific reaction [Unknown]
  - Inability to afford medication [Unknown]
  - Dyspnoea [Unknown]
  - Neoplasm malignant [Unknown]
  - Ill-defined disorder [Unknown]
  - Injury [Unknown]
  - Disability [Unknown]
  - Malaise [Unknown]
  - Drug dose omission [Unknown]
